FAERS Safety Report 10083385 (Version 1)
Quarter: 2014Q2

REPORT INFORMATION
  Report Type: Spontaneous
  Country: US (occurrence: None)
  Receive Date: 20140416
  Receipt Date: 20140416
  Transmission Date: 20141212
  Serious: No
  Sender: FDA-Public Use
  Company Number: None

PATIENT
  Age: 23 Month
  Sex: Male
  Weight: 12 kg

DRUGS (6)
  1. ROCEPHIN [Suspect]
     Indication: PNEUMONIA
     Dates: start: 20140129
  2. ALBUTEROL [Concomitant]
  3. BUDESONIDE [Concomitant]
  4. IBUPROFEN [Concomitant]
  5. IPRATROPIUM [Concomitant]
  6. METHYLPREDINSOLONE [Concomitant]

REACTIONS (3)
  - Erythema [None]
  - Erythema [None]
  - Erythema [None]
